FAERS Safety Report 6729063-5 (Version None)
Quarter: 2010Q2

REPORT INFORMATION
  Report Type: 
  Country: None (occurrence: None)
  Receive Date: 20100517
  Receipt Date: 20100329
  Transmission Date: 20101027
  Serious: No
  Sender: FDA-Public Use
  Company Number: US-ABBOTT-10P-163-0636192-00

PATIENT
  Sex: Female
  Weight: 49.94 kg

DRUGS (5)
  1. SIMCOR [Suspect]
     Indication: BLOOD CHOLESTEROL
     Dates: start: 20100201, end: 20100326
  2. SIMCOR [Suspect]
     Route: 048
     Dates: start: 20100327, end: 20100327
  3. FOSAMAX GENERIC [Concomitant]
     Indication: BONE DISORDER
  4. CALCIUM VIT D [Concomitant]
     Indication: DRUG USE FOR UNKNOWN INDICATION
  5. COQ10 [Concomitant]
     Indication: DRUG USE FOR UNKNOWN INDICATION

REACTIONS (3)
  - FLUSHING [None]
  - RASH ERYTHEMATOUS [None]
  - RASH PRURITIC [None]
